FAERS Safety Report 9722985 (Version 1)
Quarter: 2013Q4

REPORT INFORMATION
  Report Type: Spontaneous
  Country: GB (occurrence: GB)
  Receive Date: 20131202
  Receipt Date: 20131202
  Transmission Date: 20140711
  Serious: Yes (Death)
  Sender: FDA-Public Use
  Company Number: PHHY2013GB136726

PATIENT
  Age: 24 Year
  Sex: Male

DRUGS (8)
  1. OCTREOTIDE [Suspect]
     Indication: HAEMORRHAGE
     Route: 058
  2. ETOPOSIDE [Concomitant]
     Indication: TESTICULAR GERM CELL TUMOUR MIXED STAGE III
  3. BLEOMYCIN [Concomitant]
     Indication: TESTICULAR GERM CELL TUMOUR MIXED STAGE III
  4. CISPLATIN [Concomitant]
     Indication: TESTICULAR GERM CELL TUMOUR MIXED STAGE III
  5. GEMCITABINE [Concomitant]
     Indication: TESTICULAR GERM CELL TUMOUR MIXED STAGE III
  6. OXALIPLATIN [Concomitant]
     Indication: TESTICULAR GERM CELL TUMOUR MIXED STAGE III
  7. THALIDOMIDE [Concomitant]
     Indication: HAEMORRHAGE
     Dosage: 200 MG, UNK
     Route: 048
  8. GEMOX [Concomitant]
     Indication: TESTICULAR GERM CELL TUMOUR MIXED STAGE III

REACTIONS (2)
  - Death [Fatal]
  - Drug ineffective [Unknown]
